FAERS Safety Report 10660483 (Version 3)
Quarter: 2015Q1

REPORT INFORMATION
  Report Type: Spontaneous
  Country: US (occurrence: US)
  Receive Date: 20141217
  Receipt Date: 20150105
  Transmission Date: 20150720
  Serious: Yes (Death, Other)
  Sender: FDA-Public Use
  Company Number: US-GLAXOSMITHKLINE-A1085119A

PATIENT
  Sex: Male

DRUGS (1)
  1. VOTRIENT [Suspect]
     Active Substance: PAZOPANIB HYDROCHLORIDE
     Indication: RENAL CANCER
     Dosage: 200 MG TABLETS
     Route: 065
     Dates: end: 20140806

REACTIONS (4)
  - Malignant fibrous histiocytoma [Fatal]
  - Disease progression [Unknown]
  - Hospice care [Unknown]
  - Drug ineffective [Unknown]
